FAERS Safety Report 6632126-6 (Version None)
Quarter: 2010Q1

REPORT INFORMATION
  Report Type: 
  Country: None (occurrence: None)
  Receive Date: 20100312
  Receipt Date: 20100310
  Transmission Date: 20100710
  Serious: Yes (Death, Hospitalization)
  Sender: FDA-Public Use
  Company Number: JP-SANOFI-AVENTIS-2010SA006463

PATIENT
  Age: 53 Year
  Sex: Male
  Weight: 77 kg

DRUGS (5)
  1. PLAVIX [Suspect]
     Route: 048
     Dates: start: 20090208, end: 20090208
  2. PLAVIX [Suspect]
     Route: 048
     Dates: start: 20090209, end: 20090214
  3. ASPIRIN [Concomitant]
     Route: 048
     Dates: start: 20090208, end: 20090225
  4. HEPARIN [Concomitant]
     Dosage: DOSE:12000 UNIT(S)
     Route: 042
     Dates: start: 20090208, end: 20090210
  5. PLETAL [Concomitant]
     Route: 048
     Dates: start: 20090214

REACTIONS (2)
  - CARDIAC DEATH [None]
  - HEPATIC ENZYME INCREASED [None]
